FAERS Safety Report 7807292-7 (Version None)
Quarter: 2011Q4

REPORT INFORMATION
  Report Type: 
  Country: None (occurrence: None)
  Receive Date: 20111011
  Receipt Date: 20110930
  Transmission Date: 20120403
  Serious: Yes (Other)
  Sender: FDA-Public Use
  Company Number: MX-MERCK-1109MEX00019

PATIENT
  Age: 63 Year
  Sex: Female
  Weight: 64 kg

DRUGS (4)
  1. [THERAPY UNSPECIFIED] [Concomitant]
     Route: 065
  2. FOSAMAX [Suspect]
     Route: 065
     Dates: start: 20060101, end: 20080101
  3. MELOXICAM [Concomitant]
     Route: 065
  4. AMLODIPINE BESYLATE AND ATORVASTATIN CALCIUM [Concomitant]
     Indication: HYPERTENSION
     Route: 065

REACTIONS (5)
  - JAW DISORDER [None]
  - BONE DISORDER [None]
  - FISTULA [None]
  - INFLAMMATION [None]
  - OSTEITIS [None]
